FAERS Safety Report 21878935 (Version 1)
Quarter: 2023Q1

REPORT INFORMATION
  Report Type: Spontaneous
  Country: US (occurrence: None)
  Receive Date: 20230117
  Receipt Date: 20230117
  Transmission Date: 20230418
  Serious: Yes (Disabling)
  Sender: FDA-Public Use
  Company Number: None

PATIENT
  Age: 84 Year
  Sex: Male

DRUGS (7)
  1. ELIGARD [Suspect]
     Active Substance: LEUPROLIDE ACETATE
     Indication: Prostate cancer
     Dosage: OTHER FREQUENCY : EVERY 6  MONTHS;?
     Route: 030
     Dates: start: 20220215
  2. multi -vitamin/mineral [Concomitant]
  3. POTASSIUM [Concomitant]
     Active Substance: POTASSIUM
  4. MAGNESIUM [Concomitant]
     Active Substance: MAGNESIUM
  5. ZINC [Concomitant]
     Active Substance: ZINC
  6. Ca [Concomitant]
  7. E3 [Concomitant]

REACTIONS (5)
  - Fall [None]
  - Muscular weakness [None]
  - Dizziness [None]
  - Syncope [None]
  - Spinal pain [None]

NARRATIVE: CASE EVENT DATE: 20221208
